FAERS Safety Report 25113256 (Version 2)
Quarter: 2025Q2

REPORT INFORMATION
  Report Type: Spontaneous
  Country: US (occurrence: US)
  Receive Date: 20250324
  Receipt Date: 20250403
  Transmission Date: 20250716
  Serious: Yes (Life-Threatening)
  Sender: PFIZER
  Company Number: US-MLMSERVICE-20250317-PI445696-00132-1

PATIENT
  Age: 45 Year
  Sex: Male

DRUGS (1)
  1. NOREPINEPHRINE BITARTRATE [Suspect]
     Active Substance: NOREPINEPHRINE BITARTRATE
     Indication: Hypotension

REACTIONS (3)
  - Arteriospasm coronary [Recovering/Resolving]
  - Ventricular tachycardia [Unknown]
  - Cardiac arrest [Unknown]
